FAERS Safety Report 10611675 (Version 1)
Quarter: 2014Q4

REPORT INFORMATION
  Report Type: Spontaneous
  Country: RU (occurrence: RU)
  Receive Date: 20141126
  Receipt Date: 20141126
  Transmission Date: 20150529
  Serious: Yes (Death, Other)
  Sender: FDA-Public Use
  Company Number: RU-009507513-1411RUS012241

PATIENT
  Age: 75 Year
  Sex: Female
  Weight: 95 kg

DRUGS (4)
  1. EPTIFIBATIDE [Suspect]
     Active Substance: EPTIFIBATIDE
     Indication: ACUTE MYOCARDIAL INFARCTION
     Dosage: UNK
     Route: 042
     Dates: start: 20141116, end: 20141116
  2. CLOPIDOGREL [Concomitant]
     Active Substance: CLOPIDOGREL BISULFATE
     Dosage: UNK
     Dates: start: 20141116
  3. ASPIRIN. [Concomitant]
     Active Substance: ASPIRIN
     Dosage: UNK
     Dates: start: 20141116
  4. HEPARIN [Concomitant]
     Active Substance: HEPARIN SODIUM
     Dosage: UNK
     Dates: start: 20141116, end: 20141116

REACTIONS (2)
  - Cardiac failure [Fatal]
  - Pericardial haemorrhage [Recovered/Resolved]
